FAERS Safety Report 23640059 (Version 1)
Quarter: 2024Q1

REPORT INFORMATION
  Report Type: Spontaneous
  Country: US (occurrence: US)
  Receive Date: 20240317
  Receipt Date: 20240317
  Transmission Date: 20240409
  Serious: Yes (Hospitalization)
  Sender: FDA-Public Use
  Company Number: US-DRL-USA-LIT/USA/24/0004226

PATIENT
  Age: 74 Year
  Sex: Male

DRUGS (5)
  1. DOXYCYCLINE [Suspect]
     Active Substance: DOXYCYCLINE
     Indication: Tularaemia
  2. GENTAMICIN [Suspect]
     Active Substance: GENTAMICIN
     Indication: Tularaemia
  3. LINEZOLID [Suspect]
     Active Substance: LINEZOLID
     Indication: Tularaemia
  4. VANCOMYCIN [Suspect]
     Active Substance: VANCOMYCIN
     Indication: Tularaemia
  5. CEFEPIME [Suspect]
     Active Substance: CEFEPIME HYDROCHLORIDE
     Indication: Tularaemia

REACTIONS (5)
  - Drug ineffective [Unknown]
  - Disease progression [Unknown]
  - Bronchopulmonary aspergillosis [Unknown]
  - Septic shock [Unknown]
  - Disseminated mucormycosis [Unknown]
